FAERS Safety Report 12789307 (Version 2)
Quarter: 2016Q4

REPORT INFORMATION
  Report Type: Spontaneous
  Country: US (occurrence: US)
  Receive Date: 20160928
  Receipt Date: 20161006
  Transmission Date: 20170207
  Serious: Yes (Hospitalization)
  Sender: FDA-Public Use
  Company Number: US-UNITED THERAPEUTICS-UNT-2016-015063

PATIENT
  Age: 67 Year
  Sex: Female
  Weight: 48.3 kg

DRUGS (2)
  1. ELIQUIS [Concomitant]
     Active Substance: APIXABAN
     Indication: PRODUCT USED FOR UNKNOWN INDICATION
  2. TYVASO [Suspect]
     Active Substance: TREPROSTINIL
     Indication: PULMONARY HYPERTENSION
     Dosage: 12-54 ?G, QID
     Dates: start: 20160825

REACTIONS (2)
  - Cardiac failure [Unknown]
  - Product use issue [Unknown]

NARRATIVE: CASE EVENT DATE: 20160921
